FAERS Safety Report 8782379 (Version 2)
Quarter: 2012Q4

REPORT INFORMATION
  Report Type: 
  Country: US (occurrence: US)
  Receive Date: 20120913
  Receipt Date: 20121004
  Transmission Date: 20130627
  Serious: No
  Sender: FDA-Public Use
  Company Number: US-VERTEX PHARMACEUTICAL INC.-2012-019850

PATIENT
  Age: 47 Year
  Weight: 109 kg

DRUGS (5)
  1. INCIVEK [Suspect]
     Indication: HEPATITIS C
     Dosage: 750 mg, tid
     Route: 048
     Dates: start: 20120809
  2. RIBASPHERE [Concomitant]
     Indication: HEPATITIS C
     Dosage: 600 mg, bid
     Dates: start: 20120809
  3. PEGASYS [Concomitant]
     Dosage: 180 UNK, UNK
     Route: 058
  4. METFORMIN [Concomitant]
     Dosage: 500 mg, UNK
  5. ZOLOFT [Concomitant]
     Dosage: 50 mg, qd

REACTIONS (5)
  - Incorrect drug administration duration [Recovered/Resolved]
  - Headache [Not Recovered/Not Resolved]
  - Pyrexia [Recovered/Resolved]
  - Asthenia [Not Recovered/Not Resolved]
  - Pruritus [Not Recovered/Not Resolved]
